FAERS Safety Report 19867200 (Version 2)
Quarter: 2022Q1

REPORT INFORMATION
  Report Type: Spontaneous
  Country: HU (occurrence: HU)
  Receive Date: 20210922
  Receipt Date: 20220117
  Transmission Date: 20220424
  Serious: Yes (Life-Threatening, Hospitalization, Other)
  Sender: FDA-Public Use
  Company Number: HU-GLAXOSMITHKLINE-HU2021EME198004

PATIENT
  Age: 17 Year
  Sex: Female
  Weight: 50 kg

DRUGS (1)
  1. LAMICTAL [Suspect]
     Active Substance: LAMOTRIGINE
     Indication: Epilepsy
     Dosage: 50 MG, BID
     Route: 048
     Dates: start: 20210105, end: 20210202

REACTIONS (46)
  - Sepsis [Recovered/Resolved with Sequelae]
  - Multiple organ dysfunction syndrome [Recovered/Resolved with Sequelae]
  - Staphylococcal sepsis [Recovered/Resolved]
  - Delirium [Recovered/Resolved]
  - Hypothermia [Recovered/Resolved]
  - Acid-base balance disorder mixed [Recovered/Resolved]
  - Acute respiratory distress syndrome [Unknown]
  - Drug hypersensitivity [Not Recovered/Not Resolved]
  - Toxic epidermal necrolysis [Recovered/Resolved with Sequelae]
  - Acute kidney injury [Recovered/Resolved]
  - Anaemia [Recovered/Resolved]
  - Conjunctival disorder [Recovered/Resolved]
  - Conjunctival deposit [Recovered/Resolved]
  - Eyelid degenerative disorder [Recovered/Resolved]
  - Withdrawal syndrome [Recovered/Resolved]
  - Electrolyte imbalance [Recovered/Resolved]
  - Blood osmolarity increased [Recovered/Resolved]
  - Hypernatraemia [Recovered/Resolved]
  - Decubitus ulcer [Recovered/Resolved with Sequelae]
  - Muscle spasms [Recovered/Resolved]
  - Aphthous ulcer [Unknown]
  - Lymphadenopathy [Unknown]
  - Ocular hyperaemia [Unknown]
  - Pain [Unknown]
  - Lip swelling [Unknown]
  - Mouth ulceration [Unknown]
  - Pyrexia [Unknown]
  - Pyrexia [Unknown]
  - Lesion excision [Unknown]
  - Dysphagia [Unknown]
  - Epidermolysis [Unknown]
  - Pain [Unknown]
  - Blister [Unknown]
  - Nikolsky^s sign [Unknown]
  - Eye discharge [Unknown]
  - Lip haemorrhage [Unknown]
  - Ulcer haemorrhage [Unknown]
  - Epidermolysis [Unknown]
  - Cardiovascular disorder [Unknown]
  - Hypotension [Unknown]
  - Leukopenia [Unknown]
  - Inflammatory marker increased [Unknown]
  - Pulmonary oedema [Unknown]
  - Urinary tract infection [Unknown]
  - Consciousness fluctuating [Unknown]
  - Hallucination [Unknown]

NARRATIVE: CASE EVENT DATE: 20210129
